FAERS Safety Report 13207770 (Version 1)
Quarter: 2017Q1

REPORT INFORMATION
  Report Type: Spontaneous
  Country: US (occurrence: US)
  Receive Date: 20170209
  Receipt Date: 20170209
  Transmission Date: 20170428
  Serious: Yes (Hospitalization)
  Sender: FDA-Public Use
  Company Number: US-FRESENIUS KABI-FK201701082

PATIENT
  Age: 45 Year
  Sex: Male

DRUGS (1)
  1. BLEOMYCIN [Suspect]
     Active Substance: BLEOMYCIN SULFATE
     Indication: TESTIS CANCER
     Route: 065

REACTIONS (2)
  - Acute respiratory distress syndrome [Unknown]
  - Respiratory failure [Unknown]
